FAERS Safety Report 10523269 (Version 1)
Quarter: 2014Q4

REPORT INFORMATION
  Report Type: Spontaneous
  Country: FR (occurrence: None)
  Receive Date: 20141010
  Receipt Date: 20141010
  Transmission Date: 20150528
  Serious: Yes (Hospitalization)
  Sender: FDA-Public Use
  Company Number: RAP-0164-2014

PATIENT
  Age: 58 Year
  Sex: Male

DRUGS (1)
  1. PROCYSBI DELAYED-RELEASE [Suspect]
     Active Substance: CYSTEAMINE BITARTRATE
     Indication: HUNTINGTON^S DISEASE
     Route: 048
     Dates: start: 20110705

REACTIONS (2)
  - Suicide attempt [None]
  - Anxiety [None]

NARRATIVE: CASE EVENT DATE: 20140906
